FAERS Safety Report 5317999-1 (Version None)
Quarter: 2007Q2

REPORT INFORMATION
  Report Type: 
  Country: None (occurrence: None)
  Receive Date: 20070507
  Receipt Date: 20070502
  Transmission Date: 20071010
  Serious: Yes (Hospitalization)
  Sender: FDA-Public Use
  Company Number: US-BRISTOL-MYERS SQUIBB COMPANY-13767348

PATIENT
  Sex: Male
  Weight: 68 kg

DRUGS (8)
  1. SPRYCEL [Suspect]
     Indication: LEUKAEMIA
     Dates: end: 20070201
  2. TRICOR [Concomitant]
  3. IMODIUM [Concomitant]
  4. PROTONIX [Concomitant]
  5. LORAZEPAM [Concomitant]
  6. ATENOLOL [Concomitant]
  7. TPN [Concomitant]
  8. OPIUM [Concomitant]

REACTIONS (1)
  - INTESTINAL OBSTRUCTION [None]
